FAERS Safety Report 4844787-2 (Version None)
Quarter: 2005Q4

REPORT INFORMATION
  Report Type: 
  Country: None (occurrence: None)
  Receive Date: 20051205
  Receipt Date: 20051123
  Transmission Date: 20060501
  Serious: Yes (Other)
  Sender: FDA-Public Use
  Company Number: US-BRISTOL-MYERS SQUIBB COMPANY-13193123

PATIENT
  Age: 44 Year
  Sex: Male

DRUGS (3)
  1. DIDANOSINE [Suspect]
     Indication: HIV TEST POSITIVE
  2. TENOFOVIR [Suspect]
     Indication: HIV TEST POSITIVE
  3. NEVIRAPINE [Suspect]
     Indication: HIV TEST POSITIVE

REACTIONS (1)
  - LIPODYSTROPHY ACQUIRED [None]
